FAERS Safety Report 10162741 (Version 2)
Quarter: 2014Q2

REPORT INFORMATION
  Report Type: Spontaneous
  Country: BR (occurrence: BR)
  Receive Date: 20140509
  Receipt Date: 20140509
  Transmission Date: 20141212
  Serious: Yes (Death, Other)
  Sender: FDA-Public Use
  Company Number: BR-PFIZER INC-2012059360

PATIENT
  Age: 61 Year
  Sex: Male
  Weight: 130 kg

DRUGS (9)
  1. SUTENT [Suspect]
     Indication: METASTATIC RENAL CELL CARCINOMA
     Dosage: 50 MG, UNK
     Route: 048
  2. SUTENT [Suspect]
     Dosage: 37.5 MG, 1X/DAY
     Route: 048
     Dates: start: 20120224
  3. LOTAR [Concomitant]
     Dosage: 105 MG, 1X/DAY, IN THE MORNING
  4. PRESSAT [Concomitant]
     Dosage: 160 MG, 1X/DAY, AT NIGHT
  5. LOSARTAN [Concomitant]
     Dosage: UNK
  6. PURAN T4 [Concomitant]
     Dosage: STRENGTH 75 MG
  7. PACO [Concomitant]
     Indication: PAIN
     Dosage: AS NEEDED
  8. TRAMAL [Concomitant]
     Indication: PAIN
     Dosage: AS NEEDED
  9. AMLODIPINE [Concomitant]

REACTIONS (44)
  - Death [Fatal]
  - Haematochezia [Unknown]
  - Spinal disorder [Unknown]
  - Anaemia [Unknown]
  - Pyrexia [Not Recovered/Not Resolved]
  - Constipation [Recovered/Resolved]
  - Blood pressure abnormal [Not Recovered/Not Resolved]
  - Abdominal discomfort [Not Recovered/Not Resolved]
  - Decreased appetite [Unknown]
  - Yellow skin [Recovered/Resolved]
  - Eye swelling [Unknown]
  - Dry skin [Unknown]
  - Pruritus [Unknown]
  - Aphthous stomatitis [Unknown]
  - Gastric disorder [Unknown]
  - Abdominal discomfort [Unknown]
  - Eructation [Unknown]
  - Eating disorder [Recovered/Resolved]
  - Erythema [Not Recovered/Not Resolved]
  - Thirst decreased [Not Recovered/Not Resolved]
  - Urine output decreased [Recovering/Resolving]
  - Blood cholesterol increased [Not Recovered/Not Resolved]
  - Platelet count decreased [Unknown]
  - Rash macular [Unknown]
  - Abdominal pain [Recovered/Resolved]
  - Diarrhoea [Recovered/Resolved]
  - Rectal discharge [Not Recovered/Not Resolved]
  - Lacrimation increased [Unknown]
  - Arthralgia [Unknown]
  - Abdominal discomfort [Unknown]
  - Erythema [Unknown]
  - Erythema [Unknown]
  - Somnolence [Unknown]
  - Myalgia [Unknown]
  - Petechiae [Not Recovered/Not Resolved]
  - White blood cell count decreased [Unknown]
  - Pain in extremity [Unknown]
  - Back pain [Unknown]
  - Hepatomegaly [Unknown]
  - Peripheral swelling [Recovering/Resolving]
  - Urine output increased [Unknown]
  - Haematuria [Unknown]
  - Haemorrhoids [Not Recovered/Not Resolved]
  - Dysgeusia [Not Recovered/Not Resolved]
